FAERS Safety Report 10489268 (Version 1)
Quarter: 2014Q4

REPORT INFORMATION
  Report Type: Spontaneous
  Country: US (occurrence: US)
  Receive Date: 20141002
  Receipt Date: 20141002
  Transmission Date: 20150528
  Serious: Yes (Other)
  Sender: FDA-Public Use
  Company Number: US-RECKITT BENCKISER PHARMACEUTICAL, INC-RB-71944-2014

PATIENT
  Age: 54 Year
  Sex: Male

DRUGS (1)
  1. SUBOXONE [Suspect]
     Active Substance: BUPRENORPHINE HYDROCHLORIDE\NALOXONE HYDROCHLORIDE
     Indication: DRUG DEPENDENCE
     Dosage: 4 MG, BID, DURATION OF REGIMEN 3 YEARS
     Route: 060
     Dates: start: 2011, end: 201409

REACTIONS (10)
  - Compression fracture [Not Recovered/Not Resolved]
  - Wrong technique in drug usage process [Recovered/Resolved]
  - Contusion [Not Recovered/Not Resolved]
  - Lumbar vertebral fracture [None]
  - Pain [Not Recovered/Not Resolved]
  - Humerus fracture [None]
  - Fall [Recovered/Resolved]
  - Swelling [Not Recovered/Not Resolved]
  - Accident [None]
  - Contusion [None]

NARRATIVE: CASE EVENT DATE: 20140912
